FAERS Safety Report 9908576 (Version 1)
Quarter: 2014Q1

REPORT INFORMATION
  Report Type: Report from Study
  Country: US (occurrence: US)
  Receive Date: 20140219
  Receipt Date: 20140219
  Transmission Date: 20141002
  Serious: Yes (Death)
  Sender: FDA-Public Use
  Company Number: US-ROCHE-1346494

PATIENT
  Sex: Female

DRUGS (22)
  1. AVASTIN [Suspect]
     Indication: AGE-RELATED MACULAR DEGENERATION
     Dosage: OS
     Route: 065
     Dates: start: 20100304
  2. AVASTIN [Suspect]
     Indication: CHOROIDAL NEOVASCULARISATION
     Dosage: OS
     Route: 065
     Dates: start: 20100408
  3. AVASTIN [Suspect]
     Dosage: OS
     Route: 065
     Dates: start: 20100510
  4. AVASTIN [Suspect]
     Dosage: OS
     Route: 065
     Dates: start: 20100614
  5. AVASTIN [Suspect]
     Dosage: OS
     Route: 065
     Dates: start: 20100726
  6. AVASTIN [Suspect]
     Dosage: OS
     Route: 065
     Dates: start: 20100902
  7. AVASTIN [Suspect]
     Dosage: OS
     Route: 065
     Dates: start: 20100930
  8. AVASTIN [Suspect]
     Dosage: OS
     Route: 065
     Dates: start: 20101025
  9. AVASTIN [Suspect]
     Dosage: OS
     Route: 065
     Dates: start: 20110210
  10. AVASTIN [Suspect]
     Dosage: OS
     Route: 065
     Dates: start: 20110328
  11. AVASTIN [Suspect]
     Dosage: OS
     Route: 065
     Dates: start: 20110502
  12. AVASTIN [Suspect]
     Dosage: OS
     Route: 065
     Dates: start: 20110627
  13. AVASTIN [Suspect]
     Dosage: OS
     Route: 065
     Dates: start: 20111223
  14. ZYMAR [Concomitant]
     Dosage: 1 GTT QID OS X 3 DAYS
     Route: 065
  15. ATENOLOL [Concomitant]
     Route: 048
  16. VITAMIN C [Concomitant]
     Route: 065
  17. AVAPRO [Concomitant]
  18. LASIX [Concomitant]
     Route: 048
  19. ASPIRIN [Concomitant]
     Route: 048
  20. PRESERVISION AREDS [Concomitant]
  21. MYDRIACYL [Concomitant]
     Route: 065
  22. AK-DILATE [Concomitant]
     Route: 065

REACTIONS (7)
  - Death [Fatal]
  - Vitreous detachment [Unknown]
  - Retinal depigmentation [Unknown]
  - Age-related macular degeneration [Unknown]
  - Choroidal neovascularisation [Unknown]
  - Macular scar [Unknown]
  - Off label use [Unknown]
